FAERS Safety Report 17777659 (Version 1)
Quarter: 2020Q2

REPORT INFORMATION
  Report Type: Spontaneous
  Country: US (occurrence: US)
  Receive Date: 20200513
  Receipt Date: 20200513
  Transmission Date: 20200714
  Serious: No
  Sender: FDA-Public Use
  Company Number: US-VANDA PHARMACEUTICALS, INC-2020ILOUS001789

PATIENT
  Age: 32 Year
  Sex: Male

DRUGS (1)
  1. FANAPT [Suspect]
     Active Substance: ILOPERIDONE
     Indication: BIPOLAR DISORDER
     Dosage: STARTER KIT
     Dates: start: 202002, end: 202002

REACTIONS (1)
  - Ejaculation failure [Unknown]

NARRATIVE: CASE EVENT DATE: 202002
